FAERS Safety Report 7429648-7 (Version None)
Quarter: 2011Q2

REPORT INFORMATION
  Report Type: 
  Country: None (occurrence: None)
  Receive Date: 20110421
  Receipt Date: 20110415
  Transmission Date: 20111010
  Serious: Yes (Death, Life-Threatening)
  Sender: FDA-Public Use
  Company Number: FR-PFIZER INC-2011082821

PATIENT
  Age: 1 Day
  Sex: Male
  Weight: 0.8 kg

DRUGS (9)
  1. UROMITEXAN [Concomitant]
     Route: 064
  2. DOXORUBICIN HCL [Suspect]
     Indication: BONE SARCOMA
     Dosage: 100 MG, UNK
     Route: 064
     Dates: start: 20061201
  3. DOXORUBICIN HCL [Suspect]
     Dosage: 100 MG, (SECOND CHEMOTHERAPY COURSE)
     Route: 064
     Dates: start: 20070101
  4. HOLOXAN [Suspect]
     Indication: BONE SARCOMA
     Dosage: 8500 MG
     Route: 064
     Dates: start: 20061201
  5. NEULASTA [Concomitant]
     Route: 064
  6. CISPLATIN [Suspect]
     Indication: BONE SARCOMA
     Dosage: 162 MG, UNK
     Route: 064
     Dates: start: 20061201
  7. ZOPHREN [Concomitant]
     Route: 064
  8. SOLU-MEDROL [Concomitant]
     Route: 064
  9. HOLOXAN [Suspect]
     Dosage: 8500MG (SECOND CHEMOTHERAPY COURSE)
     Route: 064
     Dates: start: 20070101

REACTIONS (9)
  - DRUG EXPOSURE DURING PREGNANCY [None]
  - OLIGOHYDRAMNIOS [None]
  - ANAEMIA [None]
  - CARDIAC FAILURE [None]
  - FOETAL GROWTH RESTRICTION [None]
  - LEFT VENTRICULAR FAILURE [None]
  - NEUTROPENIA [None]
  - THROMBOCYTOPENIA [None]
  - RENAL FAILURE [None]
